FAERS Safety Report 23931165 (Version 2)
Quarter: 2024Q2

REPORT INFORMATION
  Report Type: Spontaneous
  Country: FR (occurrence: FR)
  Receive Date: 20240603
  Receipt Date: 20240621
  Transmission Date: 20240715
  Serious: Yes (Hospitalization)
  Sender: FDA-Public Use
  Company Number: FR-ROCHE-3568814

PATIENT
  Age: 57 Year
  Sex: Male
  Weight: 74.5 kg

DRUGS (35)
  1. CYCLOPHOSPHAMIDE [Suspect]
     Active Substance: CYCLOPHOSPHAMIDE
     Dosage: UNK; C1 D5
     Route: 042
     Dates: start: 20240403
  2. CYCLOPHOSPHAMIDE [Suspect]
     Active Substance: CYCLOPHOSPHAMIDE
     Indication: Richter^s syndrome
     Dosage: UNK; C1D1
     Route: 042
     Dates: start: 20240330
  3. CYCLOPHOSPHAMIDE [Suspect]
     Active Substance: CYCLOPHOSPHAMIDE
     Dosage: UNK; C2 D5
     Route: 042
     Dates: start: 20240422
  4. CYCLOPHOSPHAMIDE [Suspect]
     Active Substance: CYCLOPHOSPHAMIDE
     Dosage: UNK; C2 D5
     Route: 042
     Dates: start: 20240426
  5. DOXORUBICIN [Suspect]
     Active Substance: DOXORUBICIN
     Indication: Richter^s syndrome
     Dosage: C1D1
     Route: 042
     Dates: start: 20240330
  6. DOXORUBICIN [Suspect]
     Active Substance: DOXORUBICIN
     Dosage: C1D5
     Route: 042
     Dates: start: 20240403
  7. DOXORUBICIN [Suspect]
     Active Substance: DOXORUBICIN
     Dosage: C2D5
     Route: 042
     Dates: start: 20240422
  8. DOXORUBICIN [Suspect]
     Active Substance: DOXORUBICIN
     Dosage: C2D5
     Route: 042
     Dates: start: 20240426
  9. GLOFITAMAB [Suspect]
     Active Substance: GLOFITAMAB
     Dosage: C2D28
     Route: 042
     Dates: start: 20240330
  10. GLOFITAMAB [Suspect]
     Active Substance: GLOFITAMAB
     Indication: Richter^s syndrome
     Dosage: C2D28
     Route: 042
     Dates: start: 20240504
  11. OBINUTUZUMAB [Suspect]
     Active Substance: OBINUTUZUMAB
     Indication: Richter^s syndrome
     Dosage: SINGLE DOSE C2D1
     Route: 042
     Dates: start: 20240422
  12. PREDNISOLONE [Suspect]
     Active Substance: PREDNISOLONE
     Dosage: 60 MG/M2
     Route: 048
     Dates: start: 20240330
  13. PREDNISOLONE [Suspect]
     Active Substance: PREDNISOLONE
     Dosage: UNK; C1 D5
     Route: 048
     Dates: start: 20240403
  14. PREDNISOLONE [Suspect]
     Active Substance: PREDNISOLONE
     Indication: Richter^s syndrome
     Dosage: UNK; C2 D5
     Route: 048
     Dates: start: 20240422
  15. PREDNISOLONE [Suspect]
     Active Substance: PREDNISOLONE
     Dosage: UNK; C2 D5
     Route: 048
     Dates: start: 20240426
  16. RITUXIMAB [Suspect]
     Active Substance: RITUXIMAB
     Indication: Richter^s syndrome
     Dosage: CYCLE 1 DAY 1, AS PER PROTOCOL
     Route: 042
     Dates: start: 20240330
  17. RITUXIMAB [Suspect]
     Active Substance: RITUXIMAB
     Dosage: CYCLE 1 DAY 5,
     Route: 042
     Dates: start: 20240503
  18. VINCRISTINE [Suspect]
     Active Substance: VINCRISTINE
     Dosage: UNK; C1D1
     Route: 065
     Dates: start: 20240330
  19. VINCRISTINE [Suspect]
     Active Substance: VINCRISTINE
     Dosage: UNK; C1D5
     Route: 042
     Dates: start: 20240403
  20. VINCRISTINE [Suspect]
     Active Substance: VINCRISTINE
     Indication: Richter^s syndrome
     Dosage: UNK; C2D5
     Route: 042
     Dates: start: 20240422
  21. VINCRISTINE [Suspect]
     Active Substance: VINCRISTINE
     Dosage: UNK; C2D5
     Route: 042
     Dates: start: 20240426
  22. BACTRIM [Concomitant]
     Active Substance: SULFAMETHOXAZOLE\TRIMETHOPRIM
     Dosage: 800 MG
     Route: 065
     Dates: start: 20240330
  23. BACTRIM [Concomitant]
     Active Substance: SULFAMETHOXAZOLE\TRIMETHOPRIM
     Dosage: 800 MG
     Route: 065
     Dates: start: 20240330
  24. BACTRIM [Concomitant]
     Active Substance: SULFAMETHOXAZOLE\TRIMETHOPRIM
     Indication: Product used for unknown indication
     Dosage: UNK
     Route: 065
  25. SODIUM BICARBONATE [Concomitant]
     Active Substance: SODIUM BICARBONATE
     Indication: Richter^s syndrome
     Route: 065
  26. SODIUM BICARBONATE [Concomitant]
     Active Substance: SODIUM BICARBONATE
     Route: 065
  27. SODIUM BICARBONATE [Concomitant]
     Active Substance: SODIUM BICARBONATE
     Route: 065
  28. EMEND [Concomitant]
     Active Substance: APREPITANT
     Indication: Richter^s syndrome
     Dosage: 125 MG
     Route: 065
  29. SOTALOL [Concomitant]
     Active Substance: SOTALOL
     Indication: Richter^s syndrome
     Dosage: 80.000MG
     Route: 065
  30. SOTALOL [Concomitant]
     Active Substance: SOTALOL
     Dosage: 80.000MG
     Route: 065
  31. SOTALOL [Concomitant]
     Active Substance: SOTALOL
     Route: 065
  32. VALACYCLOVIR HYDROCHLORIDE [Concomitant]
     Active Substance: VALACYCLOVIR HYDROCHLORIDE
     Dosage: 500.000MG
     Route: 065
     Dates: start: 20240330
  33. VALACYCLOVIR HYDROCHLORIDE [Concomitant]
     Active Substance: VALACYCLOVIR HYDROCHLORIDE
     Dosage: 500.000MG
     Route: 065
     Dates: start: 20240330
  34. VALACYCLOVIR HYDROCHLORIDE [Concomitant]
     Active Substance: VALACYCLOVIR HYDROCHLORIDE
     Indication: Product used for unknown indication
     Route: 065
  35. ONDANSETRON [Concomitant]
     Active Substance: ONDANSETRON
     Indication: Product used for unknown indication
     Route: 065

REACTIONS (1)
  - Cytokine release syndrome [Not Recovered/Not Resolved]

NARRATIVE: CASE EVENT DATE: 20240504
